FAERS Safety Report 7436611-9 (Version None)
Quarter: 2011Q2

REPORT INFORMATION
  Report Type: 
  Country: None (occurrence: None)
  Receive Date: 20110418
  Receipt Date: 20110401
  Transmission Date: 20111010
  Serious: Yes (Other)
  Sender: FDA-Public Use
  Company Number: GER/GER/11/0017969

PATIENT
  Age: 75 Year
  Sex: Female

DRUGS (8)
  1. AMLODIPINE [Suspect]
     Indication: HYPERTENSION
     Dosage: ORAL
     Route: 048
  2. HYDROCHLOROTHIAZIDE [Suspect]
     Indication: HYPERTENSION
     Dosage: ORAL
     Route: 048
  3. TEKTURNA [Suspect]
     Indication: HYPERTENSION
     Dosage: ORAL
     Route: 048
  4. URAPIDIL (URAPIDIL) [Suspect]
     Indication: HYPERTENSION
     Dosage: ORAL
     Route: 048
  5. VALSARTAN [Suspect]
     Indication: HYPERTENSION
     Dosage: ORAL
     Route: 048
  6. NEBIVOLOL HCL [Suspect]
     Indication: HYPERTENSION
     Dosage: ORAL
     Route: 048
  7. TORSEMIDE [Suspect]
     Indication: HYPERTENSION
     Dosage: ORAL
     Route: 048
  8. INTER ALIA (ANTIHYPERTENSIVES) [Suspect]
     Indication: HYPERTENSION
     Dosage: ORAL
     Route: 048

REACTIONS (7)
  - BLOOD PRESSURE INCREASED [None]
  - HYPOTHYROIDISM [None]
  - BODY FAT DISORDER [None]
  - TREATMENT NONCOMPLIANCE [None]
  - MALAISE [None]
  - CARDIAC HYPERTROPHY [None]
  - HEADACHE [None]
